FAERS Safety Report 4514432-4 (Version None)
Quarter: 2004Q4

REPORT INFORMATION
  Report Type: 
  Country: None (occurrence: None)
  Receive Date: 20041126
  Receipt Date: 20041116
  Transmission Date: 20050328
  Serious: Yes (Hospitalization, Other)
  Sender: FDA-Public Use
  Company Number: US-JNJFOC-20040702547

PATIENT
  Age: 41 Year
  Sex: Male

DRUGS (11)
  1. TYLENOL [Suspect]
  2. ZOLOFT [Suspect]
     Dosage: (100 MG TABS)
     Dates: end: 20040520
  3. AMBIEN [Suspect]
     Dates: end: 20040520
  4. FLEXERIL [Suspect]
     Dates: start: 20040201, end: 20040520
  5. OMEGA-3 FATTY ACIDS (FISH OIL) [Concomitant]
  6. PURINETHOL [Concomitant]
  7. PENTASA [Concomitant]
  8. PRILOSEC [Concomitant]
  9. SERZONE [Concomitant]
  10. FA (FOLIC ACID) [Concomitant]
  11. IBUPROFEN [Concomitant]

REACTIONS (13)
  - AMMONIA INCREASED [None]
  - ATELECTASIS [None]
  - CARDIOVASCULAR DISORDER [None]
  - CHEST PAIN [None]
  - COAGULOPATHY [None]
  - HEPATIC FAILURE [None]
  - HEPATIC STEATOSIS [None]
  - HYPOVOLAEMIA [None]
  - INFLUENZA LIKE ILLNESS [None]
  - MULTIPLE DRUG OVERDOSE [None]
  - OESOPHAGEAL DISORDER [None]
  - PNEUMONIA ASPIRATION [None]
  - PNEUMONIA STAPHYLOCOCCAL [None]
